FAERS Safety Report 25983155 (Version 1)
Quarter: 2025Q4

REPORT INFORMATION
  Report Type: Spontaneous
  Country: IL (occurrence: IL)
  Receive Date: 20251031
  Receipt Date: 20251031
  Transmission Date: 20260118
  Serious: Yes (Hospitalization)
  Sender: BOEHRINGER INGELHEIM
  Company Number: IL-BoehringerIngelheim-2025-BI-104405

PATIENT
  Age: 78 Year
  Sex: Female

DRUGS (7)
  1. JARDIANCE [Suspect]
     Active Substance: EMPAGLIFLOZIN
     Indication: Type 2 diabetes mellitus
  2. FAMOTIDINE TEVA 40 MG [Concomitant]
  3. METFORMIN [Concomitant]
     Active Substance: METFORMIN HYDROCHLORIDE
  4. RALOXIFENE [Concomitant]
     Active Substance: RALOXIFENE
  5. RAMIPRIL INOVAMED 2.5 [Concomitant]
  6. ROSUVASTATIN INOVAMED 40 MG [Concomitant]
  7. MOUNJARO KWIKPEN 7.5 MG [Concomitant]

REACTIONS (3)
  - Vomiting [Unknown]
  - Abdominal pain [Unknown]
  - Euglycaemic diabetic ketoacidosis [Unknown]
